FAERS Safety Report 13565756 (Version 2)
Quarter: 2017Q2

REPORT INFORMATION
  Report Type: Report from Study
  Country: None (occurrence: SE)
  Receive Date: 20170520
  Receipt Date: 20170523
  Transmission Date: 20170830
  Serious: Yes (Hospitalization)
  Sender: FDA-Public Use
  Company Number: SE-ABBVIE-17K-150-1980719-00

PATIENT
  Age: 72 Year
  Sex: Male

DRUGS (3)
  1. MADOPARK [Concomitant]
     Active Substance: BENSERAZIDE HYDROCHLORIDE\LEVODOPA
     Indication: PRODUCT USED FOR UNKNOWN INDICATION
     Dates: start: 20170516
  2. DUODOPA [Suspect]
     Active Substance: CARBIDOPA\LEVODOPA
     Indication: PARKINSON^S DISEASE
     Route: 050
     Dates: start: 20111016, end: 20111023
  3. DUODOPA [Suspect]
     Active Substance: CARBIDOPA\LEVODOPA
     Route: 050
     Dates: start: 20111023, end: 201705

REACTIONS (6)
  - Stoma site haemorrhage [Unknown]
  - Device occlusion [Unknown]
  - General physical health deterioration [Not Recovered/Not Resolved]
  - Incorrect route of drug administration [Unknown]
  - Stoma site haemorrhage [Unknown]
  - Device dislocation [Unknown]

NARRATIVE: CASE EVENT DATE: 201705
